FAERS Safety Report 24816562 (Version 2)
Quarter: 2025Q1

REPORT INFORMATION
  Report Type: Spontaneous
  Country: US (occurrence: US)
  Receive Date: 20250107
  Receipt Date: 20250219
  Transmission Date: 20250408
  Serious: Yes (Other)
  Sender: Unknown Manufacturer
  Company Number: US-THERATECHNOLOGIES INC.-2024-THE-TES-000530

PATIENT

DRUGS (2)
  1. EGRIFTA SV [Suspect]
     Active Substance: TESAMORELIN ACETATE
     Indication: Lipodystrophy acquired
     Dosage: 1.4 MG, QD (DAILY)
     Route: 058
     Dates: start: 202410
  2. EGRIFTA SV [Suspect]
     Active Substance: TESAMORELIN ACETATE
     Dosage: 1.4 MG, QD (DAILY)
     Route: 058

REACTIONS (5)
  - Pneumonia [Recovered/Resolved]
  - Muscle spasms [Unknown]
  - Illness [Unknown]
  - Partial lipodystrophy [Unknown]
  - Musculoskeletal discomfort [Unknown]
